FAERS Safety Report 16261412 (Version 3)
Quarter: 2019Q3

REPORT INFORMATION
  Report Type: Report from Study
  Country: IT (occurrence: IT)
  Receive Date: 20190501
  Receipt Date: 20190808
  Transmission Date: 20191004
  Serious: Yes (Hospitalization, Other)
  Sender: FDA-Public Use
  Company Number: IT-INCYTE CORPORATION-2019IN004145

PATIENT

DRUGS (4)
  1. JAKAVI [Suspect]
     Active Substance: RUXOLITINIB
     Dosage: 20 OT, UNK
     Route: 048
     Dates: start: 20190109
  2. JAKAVI [Suspect]
     Active Substance: RUXOLITINIB
     Dosage: 20 OT, UNK
     Route: 048
     Dates: start: 20180604, end: 20180801
  3. JAKAVI [Suspect]
     Active Substance: RUXOLITINIB
     Indication: MYELOFIBROSIS
     Dosage: 40 OT, UNK
     Route: 048
     Dates: start: 20180508, end: 20180603
  4. JAKAVI [Suspect]
     Active Substance: RUXOLITINIB
     Dosage: 30 OT, UNK
     Route: 048
     Dates: start: 20180802, end: 20190108

REACTIONS (2)
  - Bronchitis [Recovered/Resolved]
  - Diabetes mellitus [Unknown]

NARRATIVE: CASE EVENT DATE: 20190407
